FAERS Safety Report 11881192 (Version 1)
Quarter: 2015Q4

REPORT INFORMATION
  Report Type: Spontaneous
  Country: FR (occurrence: FR)
  Receive Date: 20151231
  Receipt Date: 20151231
  Transmission Date: 20160305
  Serious: Yes (Death)
  Sender: FDA-Public Use
  Company Number: FR-ROCHE-1685955

PATIENT
  Age: 28 Year
  Sex: Female

DRUGS (10)
  1. LOXAPAC [Suspect]
     Active Substance: LOXAPINE SUCCINATE
     Indication: MENTAL DISORDER
     Dosage: IF NEEDED
     Route: 048
     Dates: start: 20150623, end: 20150718
  2. IMOVANE [Suspect]
     Active Substance: ZOPICLONE
     Indication: INSOMNIA
     Route: 048
     Dates: start: 20150505, end: 20150718
  3. ZYPREXA [Suspect]
     Active Substance: OLANZAPINE
     Indication: MENTAL DISORDER
     Route: 048
     Dates: start: 20150713, end: 20150718
  4. ANAFRANIL [Suspect]
     Active Substance: CLOMIPRAMINE HYDROCHLORIDE
     Route: 042
     Dates: start: 20150626, end: 20150706
  5. BI MISSILOR [Suspect]
     Active Substance: METRONIDAZOLE\SPIRAMYCIN
     Indication: BREATH ODOUR
     Route: 048
     Dates: start: 20150715, end: 20150718
  6. ANAFRANIL [Suspect]
     Active Substance: CLOMIPRAMINE HYDROCHLORIDE
     Indication: DEPRESSION
     Route: 048
     Dates: start: 20150609, end: 20150623
  7. VALIUM [Suspect]
     Active Substance: DIAZEPAM
     Indication: ANXIETY
     Route: 048
     Dates: start: 20150512, end: 20150718
  8. ANAFRANIL [Suspect]
     Active Substance: CLOMIPRAMINE HYDROCHLORIDE
     Route: 048
     Dates: start: 20150706, end: 20150718
  9. LEPTICUR [Suspect]
     Active Substance: TROPATEPINE HYDROCHLORIDE
     Indication: EXTRAPYRAMIDAL DISORDER
     Route: 048
     Dates: start: 20150717, end: 20150718
  10. ANAFRANIL [Suspect]
     Active Substance: CLOMIPRAMINE HYDROCHLORIDE
     Route: 042
     Dates: start: 20150623, end: 20150626

REACTIONS (1)
  - Death [Fatal]

NARRATIVE: CASE EVENT DATE: 20150718
